FAERS Safety Report 5146480-8 (Version None)
Quarter: 2006Q4

REPORT INFORMATION
  Report Type: 
  Country: None (occurrence: None)
  Receive Date: 20061102
  Receipt Date: 20061023
  Transmission Date: 20070319
  Serious: Yes (Hospitalization, Other)
  Sender: FDA-Public Use
  Company Number: HQWYE591926AUG04

PATIENT
  Age: 61 Year
  Sex: Female

DRUGS (5)
  1. PREMARIN [Suspect]
  2. CLIMARA [Suspect]
  3. NORETHIDRONE [Suspect]
  4. PROVERA [Suspect]
  5. ZOMEPIRAC [Concomitant]

REACTIONS (11)
  - BREAST CANCER [None]
  - BREAST CANCER METASTATIC [None]
  - DRUG INTOLERANCE [None]
  - LYMPHADENOPATHY [None]
  - METASTASES TO BONE [None]
  - METASTASES TO LYMPH NODES [None]
  - METASTASES TO SPINE [None]
  - NAUSEA [None]
  - OESTROGEN RECEPTOR ASSAY POSITIVE [None]
  - PROGESTERONE RECEPTOR ASSAY POSITIVE [None]
  - PULMONARY EMBOLISM [None]
